FAERS Safety Report 23348598 (Version 2)
Quarter: 2024Q1

REPORT INFORMATION
  Report Type: Spontaneous
  Country: US (occurrence: US)
  Receive Date: 20231228
  Receipt Date: 20240216
  Transmission Date: 20240410
  Serious: No
  Sender: FDA-Public Use
  Company Number: US-GSK-US2023AMR179991

PATIENT
  Sex: Female

DRUGS (6)
  1. FLOLAN [Suspect]
     Active Substance: EPOPROSTENOL SODIUM
     Indication: Pulmonary arterial hypertension
     Dosage: UNK,49 NG/KG/MIN
     Dates: start: 202310
  2. FLOLAN [Suspect]
     Active Substance: EPOPROSTENOL SODIUM
     Indication: Pulmonary arterial hypertension
     Dosage: UNK 49 NG/KG/MIN (PUMP RATE: 75 ML/DAY)
     Dates: start: 20231003
  3. GLYCINE\MANNITOL\SODIUM CHLORIDE [Suspect]
     Active Substance: GLYCINE\MANNITOL\SODIUM CHLORIDE
     Indication: Vehicle solution use
     Dosage: UNK
     Dates: start: 202310
  4. GLYCINE\MANNITOL\SODIUM CHLORIDE [Suspect]
     Active Substance: GLYCINE\MANNITOL\SODIUM CHLORIDE
     Dosage: UNK
     Dates: start: 20240108
  5. VELETRI [Concomitant]
     Active Substance: EPOPROSTENOL
     Indication: Product used for unknown indication
     Dosage: UNK
  6. SODIUM CHLORIDE [Concomitant]
     Active Substance: SODIUM CHLORIDE
     Indication: Product used for unknown indication
     Dosage: UNK

REACTIONS (2)
  - Organ failure [Not Recovered/Not Resolved]
  - Malaise [Unknown]
